FAERS Safety Report 7619152-5 (Version None)
Quarter: 2011Q3

REPORT INFORMATION
  Report Type: 
  Country: None (occurrence: None)
  Receive Date: 20110718
  Receipt Date: 20110713
  Transmission Date: 20111222
  Serious: Yes (Life-Threatening, Other)
  Sender: FDA-Public Use
  Company Number: JP-ASTRAZENECA-2011SE36765

PATIENT
  Age: 79 Year
  Sex: Female

DRUGS (11)
  1. IRESSA [Suspect]
     Indication: NON-SMALL CELL LUNG CANCER
     Route: 048
     Dates: start: 20101215, end: 20110202
  2. BROTIZOLAM OD [Concomitant]
     Indication: INSOMNIA
     Route: 048
     Dates: start: 20110506, end: 20110516
  3. UNKNOWNDRUG [Concomitant]
     Indication: BRONCHITIS
     Dosage: 1/3 OF DAILY DOSE THREE TIMES A DAY
     Route: 048
     Dates: start: 20110506, end: 20110512
  4. AMLODIPINE [Concomitant]
     Indication: HYPERTENSION
     Route: 048
     Dates: start: 20110506, end: 20110516
  5. IRESSA [Suspect]
     Route: 048
     Dates: start: 20110226, end: 20110507
  6. BIOFERMIN [Concomitant]
     Indication: DIARRHOEA
     Route: 048
     Dates: start: 20110506, end: 20110512
  7. CRESTOR [Concomitant]
     Indication: HYPERCHOLESTEROLAEMIA
     Route: 048
     Dates: start: 20110506, end: 20110516
  8. BASEN OD [Concomitant]
     Indication: DIABETES MELLITUS
     Route: 048
     Dates: start: 20110506, end: 20110516
  9. GASPORT-D [Concomitant]
     Indication: GASTRIC ULCER
     Route: 048
     Dates: start: 20110506, end: 20110516
  10. LEVOTHYROXINE SODIUM [Concomitant]
     Indication: HYPOTHYROIDISM
     Route: 048
     Dates: start: 20110506, end: 20110516
  11. IRESSA [Suspect]
     Route: 048
     Dates: start: 20110508, end: 20110516

REACTIONS (4)
  - HEPATIC FUNCTION ABNORMAL [None]
  - DIARRHOEA [None]
  - MELAENA [None]
  - GASTROINTESTINAL PERFORATION [None]
